FAERS Safety Report 6930240-9 (Version None)
Quarter: 2010Q3

REPORT INFORMATION
  Report Type: 
  Country: None (occurrence: None)
  Receive Date: 20100818
  Receipt Date: 20100809
  Transmission Date: 20110219
  Serious: Yes (Death, Hospitalization)
  Sender: FDA-Public Use
  Company Number: US-SANOFI-AVENTIS-2010SA035219

PATIENT
  Age: 88 Year
  Sex: Female
  Weight: 59.1 kg

DRUGS (32)
  1. MULTAQ [Suspect]
     Indication: ATRIAL FIBRILLATION
     Route: 048
     Dates: start: 20100406, end: 20100406
  2. LEVAQUIN [Suspect]
     Dosage: 750 MG EVERY 48 HOURS
     Route: 048
     Dates: start: 20100330, end: 20100405
  3. ACETAMINOPHEN [Concomitant]
  4. HYDROCODONE BITARTRATE + ACETAMINOPHEN [Concomitant]
     Dosage: 5-500
  5. PROPOXYPHENE HCL [Concomitant]
  6. ALL OTHER THERAPEUTIC PRODUCTS [Concomitant]
  7. INSULIN [Concomitant]
  8. SENNA SYRUP [Concomitant]
  9. ASPIRIN [Concomitant]
  10. LACTULOSE [Concomitant]
  11. TEMAZEPAM [Concomitant]
  12. BISACODYL [Concomitant]
  13. LORATADINE [Concomitant]
  14. ALBUTEROL SULFATE [Concomitant]
  15. CALCIUM CARBONATE/VITAMIN D NOS [Concomitant]
  16. LOVASTATIN [Concomitant]
  17. CILOSTAZOL [Concomitant]
  18. METHOCARBAMOL [Concomitant]
  19. CLOPIDOGREL [Concomitant]
  20. METHYLPREDNISOLONE [Concomitant]
  21. CYANOCOBALAMIN [Concomitant]
  22. MULTI-VITAMINS [Concomitant]
  23. DIGOXIN [Concomitant]
  24. NITRGLYCERIN TRANSDERMAL SYSTEM [Concomitant]
  25. DILTIAZEM [Concomitant]
     Route: 041
  26. ONDANSETRON [Concomitant]
  27. DOXYCYCLINE [Concomitant]
  28. PANTOPRAZOLE [Concomitant]
  29. ENOXAPARIN SODIUM [Concomitant]
  30. PREDNISONE [Concomitant]
  31. FAMOTIDINE [Concomitant]
  32. PROMETHAZINE [Concomitant]

REACTIONS (2)
  - TORSADE DE POINTES [None]
  - VENTRICULAR TACHYCARDIA [None]
